FAERS Safety Report 16549534 (Version 1)
Quarter: 2019Q3

REPORT INFORMATION
  Report Type: Spontaneous
  Country: FR (occurrence: FR)
  Receive Date: 20190710
  Receipt Date: 20190710
  Transmission Date: 20191004
  Serious: Yes (Other)
  Sender: FDA-Public Use
  Company Number: FR-GILEAD-2019-0416842

PATIENT
  Age: 53 Year
  Sex: Male
  Weight: 60 kg

DRUGS (7)
  1. INSULIN [Concomitant]
     Active Substance: INSULIN NOS
     Indication: TYPE 1 DIABETES MELLITUS
     Dosage: UNK
     Dates: start: 1990
  2. LANTUS [Concomitant]
     Active Substance: INSULIN GLARGINE
  3. SEROPLEX [Concomitant]
     Active Substance: ESCITALOPRAM OXALATE
     Indication: DEPRESSION
     Dosage: 10 MG, QD
     Dates: start: 201407
  4. SOFOSBUVIR [Suspect]
     Active Substance: SOFOSBUVIR
     Indication: HEPATITIS C
     Dosage: 400 MG, QD
     Route: 048
     Dates: start: 20140519, end: 20141102
  5. DACLATASVIR DIHYDROCHLORIDE [Suspect]
     Active Substance: DACLATASVIR DIHYDROCHLORIDE
     Indication: HEPATITIS C
     Dosage: 60 MG, QD
     Route: 048
     Dates: start: 20140519, end: 20141102
  6. LYSANXIA [Concomitant]
     Active Substance: PRAZEPAM
     Indication: DEPRESSION
     Dosage: 40 MG, QD
     Dates: start: 2007
  7. NOVORAPID [Concomitant]
     Active Substance: INSULIN ASPART

REACTIONS (3)
  - Sleep disorder [Unknown]
  - Depression [Not Recovered/Not Resolved]
  - Irritability [Unknown]

NARRATIVE: CASE EVENT DATE: 20140616
